FAERS Safety Report 6217311-X (Version None)
Quarter: 2009Q2

REPORT INFORMATION
  Report Type: 
  Country: None (occurrence: None)
  Receive Date: 20090608
  Receipt Date: 20090605
  Transmission Date: 20091009
  Serious: Yes (Other)
  Sender: FDA-Public Use
  Company Number: US-PFIZER INC-2009183694

PATIENT
  Age: 14 Year
  Sex: Female

DRUGS (3)
  1. ZOLOFT [Suspect]
     Indication: DEPRESSION
     Dates: start: 20080801
  2. GEODON [Suspect]
     Indication: BIPOLAR DISORDER
     Dates: start: 20081001
  3. RITALIN - SLOW RELEASE [Suspect]
     Indication: DEPRESSION
     Dates: start: 20090211

REACTIONS (7)
  - ANOREXIA [None]
  - ANXIETY [None]
  - DIZZINESS [None]
  - FEAR [None]
  - HALLUCINATION [None]
  - MALAISE [None]
  - SOMNOLENCE [None]
